FAERS Safety Report 15027069 (Version 1)
Quarter: 2018Q2

REPORT INFORMATION
  Report Type: Spontaneous
  Country: ES (occurrence: ES)
  Receive Date: 20180619
  Receipt Date: 20180619
  Transmission Date: 20180711
  Serious: Yes (Hospitalization)
  Sender: FDA-Public Use
  Company Number: ES-TEVA-2018-ES-908878

PATIENT
  Age: 59 Year
  Sex: Male
  Weight: 57.5 kg

DRUGS (3)
  1. IMUREL 50 MG FILM-COATED TABLETS, 50 TABLETS [Concomitant]
     Indication: CROHN^S DISEASE
     Dosage: 50 MILLIGRAM DAILY;
     Route: 048
     Dates: start: 20180101, end: 20180201
  2. CALCIUM CARBONATE. [Concomitant]
     Active Substance: CALCIUM CARBONATE
     Dosage: 1.5 GRAM DAILY;
     Route: 048
  3. PREDNISONE. [Suspect]
     Active Substance: PREDNISONE
     Indication: CROHN^S DISEASE
     Dosage: 15 MILLIGRAM DAILY;
     Route: 048
     Dates: start: 201801, end: 20180120

REACTIONS (1)
  - Diabetic metabolic decompensation [Recovered/Resolved]

NARRATIVE: CASE EVENT DATE: 20180129
